FAERS Safety Report 8681333 (Version 3)
Quarter: 2012Q4

REPORT INFORMATION
  Report Type: 
  Country: US (occurrence: US)
  Receive Date: 20120725
  Receipt Date: 20120920
  Transmission Date: 20130627
  Serious: Yes (Hospitalization, Other)
  Sender: FDA-Public Use
  Company Number: US-009507513-2012SP017149

PATIENT
  Age: 35 None

DRUGS (1)
  1. NUVARING [Suspect]
     Indication: CONTRACEPTION
     Dosage: 0.12-0.015 mg, every month for 3 weeks
     Route: 067
     Dates: start: 200901, end: 20100415

REACTIONS (6)
  - Pulmonary embolism [Recovering/Resolving]
  - Deep vein thrombosis [Unknown]
  - Thrombophlebitis [Unknown]
  - Muscle spasms [Unknown]
  - Rash papular [Unknown]
  - Road traffic accident [Unknown]
